FAERS Safety Report 6017926-8 (Version None)
Quarter: 2008Q4

REPORT INFORMATION
  Report Type: 
  Country: None (occurrence: None)
  Receive Date: 20081223
  Receipt Date: 20081210
  Transmission Date: 20090506
  Serious: Yes (Hospitalization, Disabling)
  Sender: FDA-Public Use
  Company Number: US-JNJFOC-20040705075

PATIENT
  Sex: Male
  Weight: 18.51 kg

DRUGS (5)
  1. CHILDREN'S MOTRIN [Suspect]
     Indication: COUGH
  2. CHILDREN'S MOTRIN [Suspect]
     Indication: PYREXIA
  3. ZITHROMAX [Concomitant]
  4. COUGH SYRUP [Concomitant]
  5. EYE DROPS [Concomitant]

REACTIONS (2)
  - OBLITERATIVE BRONCHIOLITIS [None]
  - STEVENS-JOHNSON SYNDROME [None]
